FAERS Safety Report 5000441-8 (Version None)
Quarter: 2006Q2

REPORT INFORMATION
  Report Type: 
  Country: None (occurrence: None)
  Receive Date: 20060511
  Receipt Date: 20051005
  Transmission Date: 20061013
  Serious: Yes (Hospitalization, Other)
  Sender: FDA-Public Use
  Company Number: PR-MERCK-0510USA04203

PATIENT
  Age: 56 Year
  Sex: Male
  Weight: 86 kg

DRUGS (4)
  1. VIOXX [Suspect]
     Indication: ARTHRALGIA
     Route: 048
     Dates: start: 20000101, end: 20010101
  2. VIOXX [Suspect]
     Route: 048
     Dates: start: 20000101, end: 20010101
  3. VIOXX [Suspect]
     Indication: INTERVERTEBRAL DISC PROTRUSION
     Route: 048
     Dates: start: 20000101, end: 20010101
  4. VIOXX [Suspect]
     Route: 048
     Dates: start: 20000101, end: 20010101

REACTIONS (8)
  - ANGINA PECTORIS [None]
  - ARRHYTHMIA [None]
  - ARTHROPATHY [None]
  - CARDIOVASCULAR DISORDER [None]
  - CEREBROVASCULAR ACCIDENT [None]
  - EMBOLISM [None]
  - HYPERTENSION [None]
  - MYOCARDIAL INFARCTION [None]
